FAERS Safety Report 9549651 (Version 3)
Quarter: 2018Q3

REPORT INFORMATION
  Report Type: Spontaneous
  Country: FR (occurrence: FR)
  Receive Date: 20130924
  Receipt Date: 20180920
  Transmission Date: 20181010
  Serious: Yes (Hospitalization, Other)
  Sender: FDA-Public Use
  Company Number: FR-ELI_LILLY_AND_COMPANY-FR201209005720

PATIENT
  Age: 23 Year
  Sex: Female

DRUGS (10)
  1. SECTRAL [Suspect]
     Active Substance: ACEBUTOLOL HYDROCHLORIDE
     Indication: CARDIAC DISORDER
     Dosage: 100 MG, BID
     Dates: start: 201202, end: 20130227
  2. PREVISCAN                          /00261401/ [Suspect]
     Active Substance: PENTOXIFYLLINE
     Indication: CARDIAC DISORDER
     Dosage: 10 MG, DAILY
     Route: 065
     Dates: start: 200707, end: 20121205
  3. MINIDRIL [Concomitant]
     Active Substance: ETHINYL ESTRADIOL\LEVONORGESTREL
     Indication: CONTRACEPTION
     Dosage: UNK
  4. ADCIRCA [Suspect]
     Active Substance: TADALAFIL
     Indication: CARDIAC DISORDER
     Dosage: 20 MG, QD
     Route: 048
     Dates: end: 20130227
  5. SANMIGRAN [Concomitant]
     Active Substance: PIZOTYLINE MALEATE
     Indication: PRODUCT USED FOR UNKNOWN INDICATION
     Dosage: UNK
  6. FRAXODI [Suspect]
     Active Substance: NADROPARIN CALCIUM
     Indication: PRODUCT USED FOR UNKNOWN INDICATION
     Dosage: UNK
     Dates: start: 201209
  7. TRACLEER [Concomitant]
     Active Substance: BOSENTAN
     Indication: PULMONARY ARTERIAL HYPERTENSION
     Dosage: 125 MG, BID
  8. LEVOTHYROX [Suspect]
     Active Substance: LEVOTHYROXINE
     Indication: PRODUCT USED FOR UNKNOWN INDICATION
     Dosage: 100 UG, DAILY
     Route: 065
  9. FRAXODI [Suspect]
     Active Substance: NADROPARIN CALCIUM
     Dosage: 0.4 ML, DAILY
     Route: 065
     Dates: start: 20121205, end: 20130227
  10. ADCIRCA [Suspect]
     Active Substance: TADALAFIL
     Indication: PULMONARY ARTERIAL HYPERTENSION
     Dosage: 20 MG, BID
     Route: 048
     Dates: start: 20120227

REACTIONS (8)
  - Cardiac disorder [Unknown]
  - Metrorrhagia [Unknown]
  - Oligohydramnios [Unknown]
  - Vomiting [Unknown]
  - Intrapartum haemorrhage [Recovered/Resolved]
  - Exposure during pregnancy [Unknown]
  - Premature separation of placenta [Unknown]
  - Haematoma [Unknown]

NARRATIVE: CASE EVENT DATE: 2012
